FAERS Safety Report 9480350 (Version 1)
Quarter: 2013Q3

REPORT INFORMATION
  Report Type: Spontaneous
  Country: US (occurrence: US)
  Receive Date: 20130828
  Receipt Date: 20130828
  Transmission Date: 20140515
  Serious: Yes (Hospitalization)
  Sender: FDA-Public Use
  Company Number: US-AMGEN-KDL099301

PATIENT
  Age: 68 Year
  Sex: Female

DRUGS (1)
  1. ENBREL [Suspect]
     Indication: RHEUMATOID ARTHRITIS
     Dosage: 25 MG, 2 TIMES/WK
     Route: 058
     Dates: start: 19980801

REACTIONS (8)
  - Knee arthroplasty [Unknown]
  - Staphylococcal infection [Unknown]
  - Postoperative wound infection [Unknown]
  - Fall [Unknown]
  - Contusion [Unknown]
  - Skin discolouration [Unknown]
  - Local swelling [Unknown]
  - Drug hypersensitivity [Unknown]
